FAERS Safety Report 13447118 (Version 1)
Quarter: 2017Q2

REPORT INFORMATION
  Report Type: Spontaneous
  Country: US (occurrence: US)
  Receive Date: 20170414
  Receipt Date: 20170414
  Transmission Date: 20170830
  Serious: Yes (Other)
  Sender: FDA-Public Use
  Company Number: None

PATIENT
  Age: 54 Year
  Sex: Female
  Weight: 91.8 kg

DRUGS (17)
  1. ASPIRIN. [Concomitant]
     Active Substance: ASPIRIN
  2. SALICYLIC ACID EPTROLEUM [Concomitant]
  3. VITAMIN D [Concomitant]
     Active Substance: CHOLECALCIFEROL
  4. STELARA [Suspect]
     Active Substance: USTEKINUMAB
  5. AMLODIPINE [Concomitant]
     Active Substance: AMLODIPINE BESYLATE
  6. CLOTRIMAZOLE/BETAMETHASONE [Concomitant]
  7. POTASSIUM GLU [Concomitant]
  8. PROMETHAZINE [Concomitant]
     Active Substance: PROMETHAZINE\PROMETHAZINE HYDROCHLORIDE
  9. LACTOSE [Concomitant]
     Active Substance: LACTOSE
  10. BENAZEPRIL [Concomitant]
     Active Substance: BENAZEPRIL HYDROCHLORIDE
  11. CALCIUM [Concomitant]
     Active Substance: CALCIUM
  12. MULTI VITAMIN [Concomitant]
     Active Substance: VITAMINS
  13. CYCLOBENZAPRINE. [Concomitant]
     Active Substance: CYCLOBENZAPRINE
  14. CARVEDILOL. [Concomitant]
     Active Substance: CARVEDILOL
  15. HYDROCHLOROTHIAZIDE. [Concomitant]
     Active Substance: HYDROCHLOROTHIAZIDE
  16. FLUTICASONE PROPIONATE. [Suspect]
     Active Substance: FLUTICASONE PROPIONATE
     Indication: SINUS DISORDER
     Dosage: ?          OTHER STRENGTH:MCG;QUANTITY:120 SPRAY(S);?
     Route: 055
     Dates: start: 20170405, end: 20170410
  17. GABAPENTIN. [Concomitant]
     Active Substance: GABAPENTIN

REACTIONS (3)
  - Dizziness postural [None]
  - Muscle spasms [None]
  - Drug dose omission [None]

NARRATIVE: CASE EVENT DATE: 20170407
